FAERS Safety Report 22517422 (Version 2)
Quarter: 2023Q2

REPORT INFORMATION
  Report Type: Spontaneous
  Country: BR (occurrence: BR)
  Receive Date: 20230603
  Receipt Date: 20230613
  Transmission Date: 20230721
  Serious: Yes (Hospitalization, Other)
  Sender: FDA-Public Use
  Company Number: BR-UCBSA-2023028116

PATIENT
  Sex: Male
  Weight: 75 kg

DRUGS (18)
  1. KEPPRA [Suspect]
     Active Substance: LEVETIRACETAM
     Indication: Seizure
     Dosage: UNK
     Dates: start: 2016
  2. KEPPRA [Suspect]
     Active Substance: LEVETIRACETAM
     Dosage: 500 MILLIGRAM, 2X/DAY (BID) (5ML (100MG/ML))
     Dates: start: 2020
  3. VIMPAT [Suspect]
     Active Substance: LACOSAMIDE
     Indication: Nervous system disorder
     Dosage: 100 MILLIGRAM, 2X/DAY (BID) (10ML (10MG/ML))
     Dates: start: 2020
  4. VIMPAT [Suspect]
     Active Substance: LACOSAMIDE
     Indication: Seizure
  5. TRILEPTAL [Suspect]
     Active Substance: OXCARBAZEPINE
     Indication: Seizure
     Dosage: UNK
     Dates: start: 2019, end: 2020
  6. DEPAKENE [Concomitant]
     Active Substance: VALPROIC ACID
     Indication: Seizure
     Dosage: 5 MILLILITER, 2X/DAY (BID)
     Dates: start: 2020
  7. CLOBAZAM [Concomitant]
     Active Substance: CLOBAZAM
     Indication: Seizure
     Dosage: 1 DOSAGE FORM, ONCE DAILY (QD)
     Dates: start: 2020
  8. LEVOTHYROXINE [Concomitant]
     Active Substance: LEVOTHYROXINE
     Indication: Hyperthyroidism
     Dosage: 100 MICROGRAM, ONCE DAILY (QD), FASTING
  9. PANTOPRAZOLE [Concomitant]
     Active Substance: PANTOPRAZOLE
     Indication: Gastric disorder
     Dosage: 1 DOSAGE FORM, ONCE DAILY (QD)
     Dates: start: 2020
  10. DOMPERIDONE [Concomitant]
     Active Substance: DOMPERIDONE
     Indication: Gastric disorder
     Dosage: 10 MILLIGRAM, 3X/DAY (TID)
     Dates: start: 2020
  11. ACETYLCYSTEINE DUM [Concomitant]
     Indication: Lung disorder
     Dosage: 1 DOSAGE FORM, 2X/DAY (BID)
     Dates: start: 2020
  12. FOLIC ACID [Concomitant]
     Active Substance: FOLIC ACID
     Indication: Nervous system disorder
     Dosage: 5 MILLIGRAM, ONCE DAILY (QD)
     Dates: start: 2020
  13. VITAMIN AD [Concomitant]
     Active Substance: PETROLATUM
     Indication: Vitamin D deficiency
     Dosage: 4 DROP, ONCE DAILY (QD)
     Dates: start: 2020
  14. ASPIRIN [Concomitant]
     Active Substance: ASPIRIN
     Indication: Product used for unknown indication
     Dosage: 1 DOSAGE FORM, ONCE DAILY (QD)
  15. ARTIFICIAL TEARS [PROPYLENE GLYCOL] [Concomitant]
     Indication: Product used for unknown indication
     Dosage: 2 DROP, 4X/DAY (QID)
     Dates: start: 2020
  16. BECLOMETHASONE DIPROPIONATE [Concomitant]
     Active Substance: BECLOMETHASONE DIPROPIONATE
     Indication: Product used for unknown indication
     Dosage: UNK
  17. FENOTEROL HYDROBROMIDE [Concomitant]
     Active Substance: FENOTEROL HYDROBROMIDE
     Indication: Product used for unknown indication
     Dosage: UNK
  18. BEPANTOL [Concomitant]
     Indication: Product used for unknown indication
     Dosage: UNK

REACTIONS (4)
  - COVID-19 [Unknown]
  - Seizure [Not Recovered/Not Resolved]
  - Gait disturbance [Unknown]
  - Condition aggravated [Unknown]
